FAERS Safety Report 21154706 (Version 2)
Quarter: 2022Q3

REPORT INFORMATION
  Report Type: Report from Study
  Country: JP (occurrence: JP)
  Receive Date: 20220801
  Receipt Date: 20220830
  Transmission Date: 20221027
  Serious: Yes (Hospitalization, Other)
  Sender: FDA-Public Use
  Company Number: JP-ONO-2020JP013405

PATIENT
  Age: 48 Year
  Sex: Male
  Weight: 70 kg

DRUGS (11)
  1. ETELCALCETIDE [Suspect]
     Active Substance: ETELCALCETIDE
     Indication: Hyperparathyroidism secondary
     Dosage: 5 MILLIGRAM, Q56H
     Route: 065
     Dates: start: 20191023, end: 20191127
  2. ETELCALCETIDE [Suspect]
     Active Substance: ETELCALCETIDE
     Dosage: 2.5 MILLIGRAM, Q56H
     Route: 065
     Dates: start: 20200327
  3. OXAROL [Concomitant]
     Active Substance: MAXACALCITOL
     Dosage: 5 MICROGRAM, 3 TIMES/WK
     Route: 065
     Dates: end: 20191211
  4. OXAROL [Concomitant]
     Active Substance: MAXACALCITOL
     Dosage: 10 MICROGRAM, 3 TIMES/WK
     Route: 065
     Dates: start: 20191213
  5. OXAROL [Concomitant]
     Active Substance: MAXACALCITOL
     Dosage: 5 UG, Q56H
     Route: 065
     Dates: end: 20191211
  6. OXAROL [Concomitant]
     Active Substance: MAXACALCITOL
     Dosage: 10 UG, Q56H
     Dates: start: 20191213
  7. BIXALOMER [Concomitant]
     Active Substance: BIXALOMER
     Dosage: 1.16 G, EVERYDAY
     Route: 065
     Dates: end: 20200728
  8. P-tol [Concomitant]
     Dosage: 1000 MG, EVERYDAY
     Route: 065
  9. FOSRENOL [Concomitant]
     Active Substance: LANTHANUM CARBONATE
     Dosage: 1500 MG, EVERYDAY
     Route: 065
     Dates: end: 20200728
  10. FOSRENOL [Concomitant]
     Active Substance: LANTHANUM CARBONATE
     Dosage: 1000 MG, EVERYDAY
     Dates: start: 20200729
  11. CALCIUM CARBONATE [Concomitant]
     Active Substance: CALCIUM CARBONATE
     Dosage: 2000 MG, EVERYDAY
     Route: 048

REACTIONS (3)
  - Shunt occlusion [Recovered/Resolved]
  - Shunt infection [Recovered/Resolved]
  - Hypocalcaemia [Recovered/Resolved]

NARRATIVE: CASE EVENT DATE: 20191125
